FAERS Safety Report 9971045 (Version 2)
Quarter: 2014Q1

REPORT INFORMATION
  Report Type: Report from Study
  Country: US (occurrence: US)
  Receive Date: 20140306
  Receipt Date: 20140306
  Transmission Date: 20141002
  Serious: No
  Sender: FDA-Public Use
  Company Number: US-ABBVIE-13P-163-1138343-00

PATIENT
  Age: 51 Year
  Sex: Female

DRUGS (6)
  1. HUMIRA [Suspect]
     Indication: RHEUMATOID ARTHRITIS
     Dates: start: 20130820, end: 20130903
  2. BENICAR [Concomitant]
     Indication: HYPERTENSION
     Dosage: 5MG DAILY
  3. LEFLUNOMIDE [Concomitant]
     Indication: RHEUMATOID ARTHRITIS
     Dosage: 20MG DAILY
  4. PREDNISONE [Concomitant]
     Indication: RHEUMATOID ARTHRITIS
  5. VALIUM [Concomitant]
     Indication: VERTIGO
     Dosage: AS NEEDED
  6. MECLIZINE [Concomitant]
     Indication: VERTIGO

REACTIONS (2)
  - Dizziness [Recovered/Resolved]
  - Injection site pain [Recovering/Resolving]
